FAERS Safety Report 17439071 (Version 1)
Quarter: 2020Q1

REPORT INFORMATION
  Report Type: Spontaneous
  Country: US (occurrence: US)
  Receive Date: 20200220
  Receipt Date: 20200220
  Transmission Date: 20200409
  Serious: No
  Sender: FDA-Public Use
  Company Number: US-TEVA-2020-US-1186510

PATIENT
  Age: 4 Year
  Sex: Male

DRUGS (1)
  1. PENICILLIN V POTASSIUM. [Suspect]
     Active Substance: PENICILLIN V POTASSIUM
     Dates: start: 20200211, end: 20200211

REACTIONS (5)
  - Lip swelling [Unknown]
  - Product dose omission [Unknown]
  - Wrong technique in product usage process [Unknown]
  - Incorrect dose administered [Unknown]
  - Abdominal pain upper [Unknown]

NARRATIVE: CASE EVENT DATE: 20200211
